FAERS Safety Report 10641678 (Version 1)
Quarter: 2014Q4

REPORT INFORMATION
  Report Type: Spontaneous
  Country: US (occurrence: US)
  Receive Date: 20141209
  Receipt Date: 20141209
  Transmission Date: 20150529
  Serious: No
  Sender: FDA-Public Use
  Company Number: US-009507513-1412USA003795

PATIENT
  Sex: Male

DRUGS (1)
  1. COMPLEX 15 HAND AND BODY LOTION [Suspect]
     Active Substance: DIMETHICONE\LECITHIN
     Indication: PRODUCT USED FOR UNKNOWN INDICATION
     Dosage: UNK, UNKNOWN
     Route: 061
     Dates: start: 2013

REACTIONS (1)
  - Drug effect decreased [Unknown]
